FAERS Safety Report 4743641-4 (Version None)
Quarter: 2005Q3

REPORT INFORMATION
  Report Type: 
  Country: None (occurrence: None)
  Receive Date: 20050812
  Receipt Date: 20040701
  Transmission Date: 20060218
  Serious: Yes (Other)
  Sender: FDA-Public Use
  Company Number: DE-BRISTOL-MYERS SQUIBB COMPANY-12633285

PATIENT
  Age: 53 Year
  Sex: Male

DRUGS (4)
  1. CETUXIMAB [Suspect]
     Indication: COLORECTAL CANCER
     Dosage: MOST RECENT INFUSION 23-JUN-2004
     Route: 041
     Dates: start: 20031125
  2. OXALIPLATIN [Suspect]
     Indication: COLORECTAL CANCER
     Dosage: MOST RECENT INFUSION WAS GIVEN ON 23-JUN-2004
     Route: 042
     Dates: start: 20031125
  3. FLUOROURACIL [Suspect]
     Indication: COLORECTAL CANCER
     Dosage: MOST RECENT INFUSION WAS GIVEN ON 23-JUN-2004
     Route: 042
     Dates: start: 20031125
  4. FOLINIC ACID [Suspect]
     Indication: COLORECTAL CANCER
     Dosage: MOST RECENT INFUSION 23-JUN-2004
     Route: 042
     Dates: start: 20031125

REACTIONS (1)
  - HAEMOLYSIS [None]
